FAERS Safety Report 23744327 (Version 1)
Quarter: 2024Q2

REPORT INFORMATION
  Report Type: Spontaneous
  Country: US (occurrence: None)
  Receive Date: 20240414
  Receipt Date: 20240414
  Transmission Date: 20240716
  Serious: No
  Sender: FDA-Public Use
  Company Number: None

PATIENT
  Age: 0 Year
  Sex: Female
  Weight: 60.75 kg

DRUGS (2)
  1. UBRELVY [Suspect]
     Active Substance: UBROGEPANT
     Indication: Migraine
     Dosage: OTHER QUANTITY : 1 CAPSULE(S);?FREQUENCY : AS NEEDED;?
     Route: 048
     Dates: start: 20240414, end: 20240414
  2. ZONI [Concomitant]

REACTIONS (8)
  - Migraine [None]
  - Crying [None]
  - Pain [None]
  - Tremor [None]
  - Vision blurred [None]
  - Feeling cold [None]
  - Asthenia [None]
  - Dizziness [None]

NARRATIVE: CASE EVENT DATE: 20240414
